FAERS Safety Report 8569835 (Version 5)
Quarter: 2015Q3

REPORT INFORMATION
  Report Type: Spontaneous
  Country: US (occurrence: US)
  Receive Date: 20120518
  Receipt Date: 20150708
  Transmission Date: 20151125
  Serious: Yes (Hospitalization, Other)
  Sender: FDA-Public Use
  Company Number: US-ASTRAZENECA-2012SE28885

PATIENT
  Age: 53 Year
  Sex: Female
  Weight: 104.3 kg

DRUGS (15)
  1. LISINOPRIL. [Suspect]
     Active Substance: LISINOPRIL
     Route: 048
     Dates: start: 201502
  2. CARVEDILOL. [Concomitant]
     Active Substance: CARVEDILOL
     Indication: CARDIOMYOPATHY
  3. FLUOXETINE HCL [Concomitant]
     Active Substance: FLUOXETINE HYDROCHLORIDE
     Indication: ANXIETY
     Dates: start: 2009
  4. IORN [Concomitant]
     Indication: BLOOD IRON DECREASED
     Dates: start: 2009
  5. LISINOPRIL. [Suspect]
     Active Substance: LISINOPRIL
     Route: 048
     Dates: start: 201502
  6. FLUOXETINE HCL [Concomitant]
     Active Substance: FLUOXETINE HYDROCHLORIDE
     Indication: DEPRESSION
     Dates: start: 2009
  7. NEXIUM [Suspect]
     Active Substance: ESOMEPRAZOLE MAGNESIUM
     Indication: MALAISE
     Route: 048
     Dates: start: 2010
  8. NEXIUM [Suspect]
     Active Substance: ESOMEPRAZOLE MAGNESIUM
     Indication: BURNING SENSATION
     Route: 048
     Dates: start: 201502, end: 20150626
  9. NEXIUM [Suspect]
     Active Substance: ESOMEPRAZOLE MAGNESIUM
     Indication: MALAISE
     Route: 048
     Dates: start: 201502, end: 20150626
  10. GABAPENTIN. [Concomitant]
     Active Substance: GABAPENTIN
     Indication: BONE PAIN
     Dates: start: 2010
  11. TRAZODONE [Concomitant]
     Active Substance: TRAZODONE HYDROCHLORIDE
     Indication: SLEEP DISORDER
     Dates: start: 2009
  12. NEXIUM [Suspect]
     Active Substance: ESOMEPRAZOLE MAGNESIUM
     Indication: BARRETT^S OESOPHAGUS
     Route: 048
     Dates: start: 2010
  13. NEXIUM [Suspect]
     Active Substance: ESOMEPRAZOLE MAGNESIUM
     Indication: BARRETT^S OESOPHAGUS
     Route: 048
     Dates: start: 201502, end: 20150626
  14. LISINOPRIL. [Suspect]
     Active Substance: LISINOPRIL
     Route: 048
     Dates: start: 20150625
  15. NEXIUM [Suspect]
     Active Substance: ESOMEPRAZOLE MAGNESIUM
     Indication: BURNING SENSATION
     Route: 048
     Dates: start: 2010

REACTIONS (34)
  - Myocardial infarction [Unknown]
  - Feeding disorder [Unknown]
  - Pain [Unknown]
  - Hypotension [Unknown]
  - Dysstasia [Unknown]
  - Vomiting [Unknown]
  - Weight decreased [Unknown]
  - Head injury [Unknown]
  - Vitreous floaters [Unknown]
  - Intentional product use issue [Unknown]
  - Neuropathy peripheral [Unknown]
  - Gastrooesophageal reflux disease [Unknown]
  - Gastric disorder [Unknown]
  - Vision blurred [Unknown]
  - Intentional product misuse [Unknown]
  - Scoliosis [Unknown]
  - Arthritis [Unknown]
  - Headache [Unknown]
  - Neoplasm malignant [Unknown]
  - Memory impairment [Unknown]
  - Nervous system disorder [Unknown]
  - Pain of skin [Unknown]
  - Malaise [Unknown]
  - Fall [Unknown]
  - Throat irritation [Unknown]
  - Hiatus hernia [Unknown]
  - Sleep disorder due to general medical condition, insomnia type [Unknown]
  - General physical condition abnormal [Unknown]
  - Transient ischaemic attack [Unknown]
  - Cardiomyopathy [Unknown]
  - Hypoaesthesia [Unknown]
  - Blood iron decreased [Unknown]
  - Paraesthesia [Unknown]
  - Drug dose omission [Unknown]

NARRATIVE: CASE EVENT DATE: 2010
